FAERS Safety Report 13778848 (Version 1)
Quarter: 2017Q3

REPORT INFORMATION
  Report Type: Spontaneous
  Country: US (occurrence: US)
  Receive Date: 20170721
  Receipt Date: 20170721
  Transmission Date: 20171127
  Serious: Yes (Other)
  Sender: FDA-Public Use
  Company Number: US-009507513-1707USA008287

PATIENT
  Sex: Female
  Weight: 48.07 kg

DRUGS (1)
  1. ZEPATIER [Suspect]
     Active Substance: ELBASVIR\GRAZOPREVIR
     Indication: HEPATITIS C
     Dosage: TAKE 1 TABLET BY MOUTH EVERY DAY (DAILY DOSE REPORTED AS 50-100 MG)
     Route: 048
     Dates: start: 201706

REACTIONS (4)
  - Headache [Recovered/Resolved]
  - Nausea [Unknown]
  - Chest injury [Unknown]
  - Weight decreased [Unknown]
